FAERS Safety Report 14380819 (Version 1)
Quarter: 2018Q1

REPORT INFORMATION
  Report Type: Spontaneous
  Country: FR (occurrence: FR)
  Receive Date: 20180112
  Receipt Date: 20180112
  Transmission Date: 20180509
  Serious: Yes (Life-Threatening)
  Sender: FDA-Public Use
  Company Number: FR-PFIZER INC-2018013059

PATIENT
  Age: 25 Year
  Sex: Female

DRUGS (4)
  1. TERALITHE [Suspect]
     Active Substance: LITHIUM CARBONATE
     Dosage: 4 DF, UNK
     Route: 048
     Dates: start: 20170917
  2. ZOPICLONE [Suspect]
     Active Substance: ZOPICLONE
     Dosage: 4 DF, UNK
     Route: 048
     Dates: start: 20170917
  3. PARKINANE [Suspect]
     Active Substance: TRIHEXYPHENIDYL HYDROCHLORIDE
     Dosage: 4 DF, UNK
     Route: 048
     Dates: start: 20170917
  4. ALPRAZOLAM. [Suspect]
     Active Substance: ALPRAZOLAM
     Dosage: 4 DF, UNK
     Route: 048
     Dates: start: 20170917

REACTIONS (2)
  - Coma [Unknown]
  - Poisoning deliberate [Unknown]

NARRATIVE: CASE EVENT DATE: 20170917
